FAERS Safety Report 4567116-0 (Version None)
Quarter: 2005Q1

REPORT INFORMATION
  Report Type: 
  Country: None (occurrence: None)
  Receive Date: 20050201
  Receipt Date: 20050120
  Transmission Date: 20050727
  Serious: Yes (Hospitalization)
  Sender: FDA-Public Use
  Company Number: FR-JNJFOC-20050100289

PATIENT
  Age: 70 Year
  Sex: Female

DRUGS (5)
  1. EPITOMAX [Suspect]
     Indication: EPILEPSY
     Route: 049
  2. URBANYL [Suspect]
     Indication: EPILEPSY
     Route: 049
  3. KEPPRA [Suspect]
     Indication: EPILEPSY
     Route: 049
  4. IMUREL [Suspect]
     Route: 049
  5. GARDENAL [Suspect]
     Indication: EPILEPSY
     Route: 049

REACTIONS (2)
  - CONDITION AGGRAVATED [None]
  - HEPATITIS CHOLESTATIC [None]
